FAERS Safety Report 12978483 (Version 1)
Quarter: 2016Q4

REPORT INFORMATION
  Report Type: Report from Study
  Country: FR (occurrence: FR)
  Receive Date: 20161128
  Receipt Date: 20161128
  Transmission Date: 20170207
  Serious: Yes (Life-Threatening, Hospitalization)
  Sender: FDA-Public Use
  Company Number: FR-JNJFOC-20161122882

PATIENT
  Age: 59 Year
  Sex: Female
  Weight: 71 kg

DRUGS (16)
  1. DIPROSONE [Concomitant]
     Active Substance: BETAMETHASONE DIPROPIONATE
     Dosage: 1 APPLICATION /D
     Route: 065
  2. TEMERIT DUO [Concomitant]
     Active Substance: HYDROCHLOROTHIAZIDE\NEBIVOLOL HYDROCHLORIDE
     Dosage: 1 TABLET/DAY
     Route: 048
  3. LASILIX [Concomitant]
     Active Substance: FUROSEMIDE
     Route: 048
     Dates: start: 20151217
  4. GLUCIDION [Concomitant]
     Active Substance: GLUCOSE, LIQUID\POTASSIUM CHLORIDE\SODIUM CHLORIDE
     Route: 042
     Dates: start: 20160313
  5. BIONOLYTE [Concomitant]
     Active Substance: UNSPECIFIED INGREDIENT
     Route: 042
     Dates: start: 20151217
  6. LOVENOX [Concomitant]
     Active Substance: ENOXAPARIN SODIUM
     Dosage: 1/DAY- 22H
     Route: 042
     Dates: start: 20151217
  7. TRAMADOL. [Concomitant]
     Active Substance: TRAMADOL
     Route: 048
     Dates: start: 20160513
  8. ACUPAN [Concomitant]
     Active Substance: NEFOPAM HYDROCHLORIDE
     Dosage: 120 MG+ DROLEPTAN 1.25 MG
     Route: 042
     Dates: start: 20160513
  9. TEMERIT [Concomitant]
     Active Substance: NEBIVOLOL
     Route: 048
     Dates: start: 20151217
  10. ATARAX [Concomitant]
     Active Substance: HYDROXYZINE\HYDROXYZINE HYDROCHLORIDE
     Dosage: 1 TABLET AT BED TIME IF REQUIRED
     Route: 048
     Dates: start: 20151217
  11. FOLFOX [Concomitant]
     Active Substance: FLUOROURACIL\LEUCOVORIN CALCIUM\OXALIPLATIN
     Route: 058
     Dates: start: 201601, end: 201609
  12. ACUPAN [Concomitant]
     Active Substance: NEFOPAM HYDROCHLORIDE
     Dosage: 120 MG/24H + 125MG DROLEPTAN/24 H
     Route: 042
     Dates: start: 20151217
  13. TRAMADOL. [Concomitant]
     Active Substance: TRAMADOL
     Dosage: 1 TABLET 4/D IF NUMERICAL PAIN SCALE SCORE }3/10
     Route: 048
     Dates: start: 20151217
  14. TRAMADOL. [Concomitant]
     Active Substance: TRAMADOL
     Dosage: UP TO 50 MG X4 / D IF VISUAL ANALOG SCALE} 3,
     Route: 048
     Dates: start: 20160513
  15. STELARA [Suspect]
     Active Substance: USTEKINUMAB
     Indication: PSORIASIS
     Route: 058
     Dates: start: 20131216, end: 201512
  16. LOVENOX [Concomitant]
     Active Substance: ENOXAPARIN SODIUM
     Route: 042
     Dates: start: 20160513

REACTIONS (1)
  - Adenocarcinoma of colon [Recovered/Resolved]

NARRATIVE: CASE EVENT DATE: 20151217
